FAERS Safety Report 25104838 (Version 1)
Quarter: 2025Q1

REPORT INFORMATION
  Report Type: Spontaneous
  Country: US (occurrence: US)
  Receive Date: 20250321
  Receipt Date: 20250321
  Transmission Date: 20250408
  Serious: No
  Sender: FERRING
  Company Number: US-FERRINGPH-2025FE00755

PATIENT
  Age: 72 Year
  Sex: Female
  Weight: 87.075 kg

DRUGS (1)
  1. REBYOTA [Suspect]
     Active Substance: DONOR HUMAN STOOL
     Indication: Bladder cancer
     Dosage: 150 ML, ONCE/SINGLE
     Route: 054
     Dates: start: 20241220, end: 20241220

REACTIONS (1)
  - Clostridium test positive [Not Recovered/Not Resolved]

NARRATIVE: CASE EVENT DATE: 20250110
